APPROVED DRUG PRODUCT: ZUNVEYL
Active Ingredient: BENZGALANTAMINE GLUCONATE
Strength: EQ 10MG BASE
Dosage Form/Route: TABLET, DELAYED RELEASE;ORAL
Application: N218549 | Product #002
Applicant: ALPHA COGNITION INC
Approved: Jul 26, 2024 | RLD: Yes | RS: No | Type: RX

PATENTS:
Patent 12208167 | Expires: Feb 26, 2044
Patent 11795176 | Expires: Jan 13, 2042
Patent 9763953 | Expires: Dec 1, 2026